FAERS Safety Report 9494559 (Version 1)
Quarter: 2013Q3

REPORT INFORMATION
  Report Type: Spontaneous
  Country: US (occurrence: US)
  Receive Date: 20130903
  Receipt Date: 20130903
  Transmission Date: 20140515
  Serious: No
  Sender: FDA-Public Use
  Company Number: US-009507513-1308USA010527

PATIENT
  Sex: Male

DRUGS (1)
  1. ZETIA [Suspect]
     Indication: LOW DENSITY LIPOPROTEIN INCREASED
     Dosage: 10 MG, FREQUENCY UNSPECIFIED
     Route: 048

REACTIONS (2)
  - Muscle atrophy [Unknown]
  - Myalgia [Unknown]
